FAERS Safety Report 17008870 (Version 1)
Quarter: 2019Q4

REPORT INFORMATION
  Report Type: Spontaneous
  Country: NG (occurrence: NG)
  Receive Date: 20191108
  Receipt Date: 20191108
  Transmission Date: 20200122
  Serious: Yes (Death)
  Sender: FDA-Public Use
  Company Number: NG-SCIEGEN PHARMACEUTICALS INC-2019SCILIT00341

PATIENT

DRUGS (3)
  1. LAMIVUDINE. [Concomitant]
     Active Substance: LAMIVUDINE
  2. NEVIRAPINE TABLETS [Suspect]
     Active Substance: NEVIRAPINE
  3. ZIDOVUDINE. [Concomitant]
     Active Substance: ZIDOVUDINE

REACTIONS (2)
  - Pyrexia [Fatal]
  - Rash [Fatal]
